FAERS Safety Report 6114283-3 (Version None)
Quarter: 2009Q1

REPORT INFORMATION
  Report Type: 
  Country: None (occurrence: None)
  Receive Date: 20090312
  Receipt Date: 20081114
  Transmission Date: 20090719
  Serious: No
  Sender: FDA-Public Use
  Company Number: US-ABBOTT-08P-163-0488441-00

PATIENT
  Age: 47 Year
  Sex: Female

DRUGS (1)
  1. DEPAKOTE [Suspect]
     Indication: DRUG USE FOR UNKNOWN INDICATION
     Dates: start: 20081001

REACTIONS (4)
  - HALLUCINATION [None]
  - RASH ERYTHEMATOUS [None]
  - RASH PRURITIC [None]
  - SLEEP DISORDER [None]
